FAERS Safety Report 8555283-3 (Version None)
Quarter: 2012Q3

REPORT INFORMATION
  Report Type: 
  Country: None (occurrence: None)
  Receive Date: 20120731
  Receipt Date: 20110826
  Transmission Date: 20120928
  Serious: No
  Sender: FDA-Public Use
  Company Number: US-ASTRAZENECA-2011SE51363

PATIENT
  Age: 44 Year
  Sex: Female
  Weight: 83.9 kg

DRUGS (4)
  1. SEROQUEL XR [Suspect]
     Indication: BIPOLAR DISORDER
     Route: 048
  2. CLONIDINE [Concomitant]
  3. NOGLAIR [Concomitant]
     Indication: ARTHRITIS
  4. DEPAKOTE [Concomitant]
     Indication: SELF ESTEEM DECREASED

REACTIONS (8)
  - CONSTIPATION [None]
  - DECREASED INTEREST [None]
  - DRUG INEFFECTIVE [None]
  - DEPRESSION [None]
  - FEELING ABNORMAL [None]
  - INSOMNIA [None]
  - ALOPECIA [None]
  - PSYCHIATRIC SYMPTOM [None]
